FAERS Safety Report 5525291-5 (Version None)
Quarter: 2007Q4

REPORT INFORMATION
  Report Type: 
  Country: None (occurrence: None)
  Receive Date: 20071126
  Receipt Date: 20071115
  Transmission Date: 20080405
  Serious: Yes (Hospitalization)
  Sender: FDA-Public Use
  Company Number: LV-ROCHE-531960

PATIENT
  Age: 34 Year
  Sex: Male

DRUGS (2)
  1. PEGASYS [Suspect]
     Indication: HEPATITIS C
     Dosage: FORM PFS
     Route: 065
     Dates: start: 20061101, end: 20071005
  2. COPEGUS [Suspect]
     Indication: HEPATITIS C
     Route: 065
     Dates: start: 20061101, end: 20071005

REACTIONS (1)
  - DEEP VEIN THROMBOSIS [None]
